FAERS Safety Report 5406805-2 (Version None)
Quarter: 2007Q3

REPORT INFORMATION
  Report Type: 
  Country: None (occurrence: None)
  Receive Date: 20070802
  Receipt Date: 20070720
  Transmission Date: 20080115
  Serious: Yes (Disabling)
  Sender: FDA-Public Use
  Company Number: S07-UKI-03234-01

PATIENT
  Age: 39 Year
  Sex: Female
  Weight: 61 kg

DRUGS (10)
  1. CIPRALEX (ESCITALOPRAM) [Suspect]
     Indication: ANXIETY
     Dosage: 15 MG QD PO
     Route: 048
     Dates: start: 20070518, end: 20070610
  2. CIPRALEX (ESCITALOPRAM) [Suspect]
     Indication: DEPRESSION
     Dosage: 15 MG QD PO
     Route: 048
     Dates: start: 20070518, end: 20070610
  3. CIPRALEX (ESCITALOPRAM) [Suspect]
     Indication: ANXIETY
     Dosage: 20 MG QD PO
     Route: 048
     Dates: start: 20070611, end: 20070625
  4. CIPRALEX (ESCITALOPRAM) [Suspect]
     Indication: DEPRESSION
     Dosage: 20 MG QD PO
     Route: 048
     Dates: start: 20070611, end: 20070625
  5. CIPRALEX (ESCITALOPRAM) [Suspect]
     Indication: ANXIETY
     Dosage: 10 MG QD PO
     Route: 048
     Dates: start: 20070426, end: 20070517
  6. CIPRALEX (ESCITALOPRAM) [Suspect]
     Indication: DEPRESSION
     Dosage: 10 MG QD PO
     Route: 048
     Dates: start: 20070426, end: 20070517
  7. AMITRIPTYLINE HCL [Concomitant]
  8. DIAZEPAM [Concomitant]
  9. DOSULEPIN [Concomitant]
  10. ZOPICLONE [Concomitant]

REACTIONS (8)
  - ANXIETY [None]
  - DEREALISATION [None]
  - DYSGEUSIA [None]
  - INSOMNIA [None]
  - MOVEMENT DISORDER [None]
  - PANIC ATTACK [None]
  - SUICIDAL IDEATION [None]
  - TEARFULNESS [None]
